FAERS Safety Report 9461697 (Version 2)
Quarter: 2013Q3

REPORT INFORMATION
  Report Type: Spontaneous
  Country: HR (occurrence: HR)
  Receive Date: 20130816
  Receipt Date: 20130829
  Transmission Date: 20140515
  Serious: Yes (Other)
  Sender: FDA-Public Use
  Company Number: HR-ABBOTT-13X-216-1131460-00

PATIENT
  Sex: Male

DRUGS (3)
  1. TARKA [Suspect]
     Indication: HYPERTENSION
     Dosage: 2 MG/180 MG; TOTAL DOSE: 56MG/5040 MG
     Route: 048
     Dates: start: 20130802
  2. TARKA [Suspect]
     Dosage: 2 MG/180 MG
  3. ALCOHOL [Suspect]
     Indication: PRODUCT USED FOR UNKNOWN INDICATION

REACTIONS (6)
  - Suicide attempt [Recovered/Resolved]
  - Hypotension [Recovered/Resolved]
  - Blood glucose increased [Recovered/Resolved]
  - Blood alcohol [Recovered/Resolved]
  - Hypocalcaemia [Recovered/Resolved]
  - Heart rate decreased [Unknown]
